FAERS Safety Report 25089606 (Version 1)
Quarter: 2025Q1

REPORT INFORMATION
  Report Type: Spontaneous
  Country: US (occurrence: None)
  Receive Date: 20250317
  Receipt Date: 20250317
  Transmission Date: 20250409
  Serious: Yes (Hospitalization)
  Sender: FDA-CTU
  Company Number: None

PATIENT
  Age: 44 Year
  Sex: Male

DRUGS (1)
  1. NALTREXONE [Suspect]
     Active Substance: NALTREXONE
     Indication: Alcohol use disorder

REACTIONS (20)
  - Eosinophilic pneumonia [None]
  - Respiratory distress [None]
  - Acute respiratory failure [None]
  - Myalgia [None]
  - Asthenia [None]
  - Vasculitis [None]
  - Atypical pneumonia [None]
  - Hypersensitivity [None]
  - Tachycardia [None]
  - Hypertension [None]
  - COVID-19 [None]
  - Nausea [None]
  - Vomiting projectile [None]
  - Palpitations [None]
  - Chromaturia [None]
  - Decreased appetite [None]
  - Wheezing [None]
  - Pleuritic pain [None]
  - Chest discomfort [None]
  - Productive cough [None]

NARRATIVE: CASE EVENT DATE: 20250226
